FAERS Safety Report 6396058-3 (Version None)
Quarter: 2009Q4

REPORT INFORMATION
  Report Type: 
  Country: None (occurrence: None)
  Receive Date: 20091007
  Receipt Date: 20090926
  Transmission Date: 20100525
  Serious: Yes (Hospitalization)
  Sender: FDA-Public Use
  Company Number: 238650K09USA

PATIENT
  Age: 35 Year
  Sex: Female
  Weight: 56 kg

DRUGS (11)
  1. REBIF [Suspect]
     Indication: MULTIPLE SCLEROSIS
     Dosage: 22 MCG, 1 IN 2 DAYS, SUBCUTANEOUS 44 MCG, 1 IN 2 DAYS, SUBCUTANEOUS
     Route: 058
     Dates: start: 20090720, end: 20090801
  2. REBIF [Suspect]
     Indication: MULTIPLE SCLEROSIS
     Dosage: 22 MCG, 1 IN 2 DAYS, SUBCUTANEOUS 44 MCG, 1 IN 2 DAYS, SUBCUTANEOUS
     Route: 058
     Dates: start: 20090801
  3. VICODIN [Concomitant]
  4. ATIVAN [Concomitant]
  5. AMRIX [Concomitant]
  6. PREQUEST (ALL OTHER THERAPEUTIC PRODUCTS) [Concomitant]
  7. BACTRIM [Concomitant]
  8. CIPRO [Concomitant]
  9. RYTHMOL [Concomitant]
  10. ASPIRIN [Concomitant]
  11. UNSPECIFIED HEART MEDICATION (ALL OTHER THERAPEUTIC PRODUCTS) [Concomitant]

REACTIONS (7)
  - CONDITION AGGRAVATED [None]
  - FLUID RETENTION [None]
  - INFLUENZA LIKE ILLNESS [None]
  - MULTIPLE SCLEROSIS [None]
  - POSTURAL ORTHOSTATIC TACHYCARDIA SYNDROME [None]
  - URINARY TRACT INFECTION [None]
  - WEIGHT INCREASED [None]
